FAERS Safety Report 9499938 (Version 1)
Quarter: 2013Q1

REPORT INFORMATION
  Report Type: Spontaneous
  Country: US (occurrence: None)
  Receive Date: 20130129
  Receipt Date: 20130129
  Transmission Date: 20140127
  Serious: No
  Sender: FDA-Public Use
  Company Number: IMP_06051_2012

PATIENT
  Sex: Female

DRUGS (1)
  1. BUDEPRION [Suspect]
     Indication: PRODUCT USED FOR UNKNOWN INDICATION
     Dosage: DF
     Dates: start: 201001

REACTIONS (4)
  - Depression [None]
  - Disturbance in attention [None]
  - Drug ineffective [None]
  - Product quality issue [None]
